FAERS Safety Report 13908844 (Version 3)
Quarter: 2018Q1

REPORT INFORMATION
  Report Type: Report from Study
  Country: CA (occurrence: CA)
  Receive Date: 20170828
  Receipt Date: 20180307
  Transmission Date: 20180508
  Serious: Yes (Other)
  Sender: FDA-Public Use
  Company Number: CA-UCBSA-2017029536

PATIENT
  Age: 31 Year
  Sex: Female
  Weight: 68 kg

DRUGS (3)
  1. CERTOLIZUMAB PEGOL RA [Suspect]
     Active Substance: CERTOLIZUMAB PEGOL
     Dosage: 200 MG, EV 2 WEEKS(QOW)
     Route: 058
     Dates: start: 2017
  2. CERTOLIZUMAB PEGOL RA [Suspect]
     Active Substance: CERTOLIZUMAB PEGOL
     Indication: RHEUMATOID ARTHRITIS
     Dosage: 400 MG, EV 2 WEEKS(QOW) X3
     Route: 058
     Dates: start: 20170704, end: 2017
  3. HYDROXYCHLOROQUINE [Concomitant]
     Active Substance: HYDROXYCHLOROQUINE
     Indication: RHEUMATOID ARTHRITIS
     Dosage: 400 MG, ONCE DAILY (QD)
     Dates: start: 201605

REACTIONS (3)
  - Exposure during pregnancy [Unknown]
  - Abortion spontaneous [Unknown]
  - Drug dose omission [Unknown]

NARRATIVE: CASE EVENT DATE: 201707
